FAERS Safety Report 22620838 (Version 1)
Quarter: 2023Q2

REPORT INFORMATION
  Report Type: Spontaneous
  Country: US (occurrence: US)
  Receive Date: 20230620
  Receipt Date: 20230620
  Transmission Date: 20230722
  Serious: No
  Sender: FDA-Public Use
  Company Number: US-SA-SAC20230620000187

PATIENT
  Age: 9 Year
  Sex: Male

DRUGS (2)
  1. ELOCTATE [Suspect]
     Active Substance: EFMOROCTOCOG ALFA
     Indication: Product used for unknown indication
     Dosage: 1200 U  (+/-10%)
     Route: 042
  2. ELOCTATE [Suspect]
     Active Substance: EFMOROCTOCOG ALFA
     Indication: Product used for unknown indication
     Dosage: 1200 U  (+/-10%)
     Route: 042

REACTIONS (2)
  - Traumatic haemorrhage [Unknown]
  - Face injury [Unknown]

NARRATIVE: CASE EVENT DATE: 20230529
